FAERS Safety Report 9377131 (Version 2)
Quarter: 2013Q4

REPORT INFORMATION
  Report Type: Spontaneous
  Country: US (occurrence: US)
  Receive Date: 20130701
  Receipt Date: 20131104
  Transmission Date: 20140711
  Serious: Yes (Hospitalization, Other)
  Sender: FDA-Public Use
  Company Number: US-PFIZER INC-2013192979

PATIENT
  Sex: Female

DRUGS (1)
  1. LYRICA [Suspect]
     Dosage: UNK

REACTIONS (6)
  - Apparent death [Unknown]
  - Lower respiratory tract infection [Unknown]
  - Infection [Unknown]
  - Blood glucose increased [Unknown]
  - Gait disturbance [Unknown]
  - Malaise [Unknown]
